FAERS Safety Report 21535908 (Version 3)
Quarter: 2023Q1

REPORT INFORMATION
  Report Type: Report from Study
  Country: US (occurrence: US)
  Receive Date: 20221101
  Receipt Date: 20230105
  Transmission Date: 20230417
  Serious: Yes (Hospitalization)
  Sender: FDA-Public Use
  Company Number: US-ABBVIE-22K-163-4516984-00

PATIENT
  Sex: Female

DRUGS (3)
  1. IMBRUVICA [Suspect]
     Active Substance: IBRUTINIB
     Indication: Non-Hodgkin^s lymphoma
     Route: 048
     Dates: start: 202210
  2. IMBRUVICA [Suspect]
     Active Substance: IBRUTINIB
     Indication: Non-Hodgkin^s lymphoma
     Route: 048
     Dates: start: 20220805, end: 20221001
  3. IMBRUVICA [Suspect]
     Active Substance: IBRUTINIB
     Indication: Non-Hodgkin^s lymphoma
     Route: 048

REACTIONS (10)
  - Diarrhoea [Recovered/Resolved]
  - Asthenia [Unknown]
  - Vomiting [Unknown]
  - Hypersomnia [Unknown]
  - Chest pain [Unknown]
  - Dehydration [Unknown]
  - Pollakiuria [Unknown]
  - Dyspepsia [Unknown]
  - Dementia [Unknown]
  - Nausea [Unknown]
